FAERS Safety Report 26074520 (Version 1)
Quarter: 2025Q4

REPORT INFORMATION
  Report Type: Spontaneous
  Country: EU (occurrence: EU)
  Receive Date: 20251121
  Receipt Date: 20251121
  Transmission Date: 20260118
  Serious: Yes (Hospitalization, Other)
  Sender: AUROBINDO
  Company Number: EU-AFSSAPS-GR2025001736

PATIENT
  Age: 62 Year
  Sex: Female
  Weight: 66 kg

DRUGS (5)
  1. ACETAMINOPHEN [Suspect]
     Active Substance: ACETAMINOPHEN
     Indication: Poisoning deliberate
     Dosage: 4 GRAM
     Dates: start: 20251016, end: 20251016
  2. VENLAFAXINE [Suspect]
     Active Substance: VENLAFAXINE HYDROCHLORIDE
     Indication: Poisoning deliberate
     Dosage: 225 MILLIGRAM
     Dates: start: 20251016, end: 20251016
  3. TRAMADOL [Suspect]
     Active Substance: TRAMADOL
     Indication: Poisoning deliberate
     Dosage: 250 MILLIGRAM
     Dates: start: 20251016, end: 20251016
  4. MIRTAZAPINE [Suspect]
     Active Substance: MIRTAZAPINE
     Indication: Poisoning deliberate
     Dosage: 105 MILLIGRAM
     Dates: start: 20251016, end: 20251016
  5. ZOPICLONE [Suspect]
     Active Substance: ZOPICLONE
     Indication: Poisoning deliberate
     Dosage: 30 MILLIGRAM
     Dates: start: 20251016, end: 20251016

REACTIONS (5)
  - Hepatic cytolysis [Recovering/Resolving]
  - Acute coronary syndrome [Recovering/Resolving]
  - Poisoning deliberate [Recovered/Resolved]
  - Lactic acidosis [Recovered/Resolved]
  - Palpitations [Recovered/Resolved]

NARRATIVE: CASE EVENT DATE: 20251016
